FAERS Safety Report 5691161-5 (Version None)
Quarter: 2008Q2

REPORT INFORMATION
  Report Type: 
  Country: None (occurrence: None)
  Receive Date: 20080402
  Receipt Date: 20080328
  Transmission Date: 20081010
  Serious: Yes (Disabling)
  Sender: FDA-Public Use
  Company Number: JP-SP-2008-00738

PATIENT
  Age: 82 Year
  Sex: Female

DRUGS (5)
  1. IMMUCYST [Suspect]
     Indication: BLADDER CANCER
     Route: 043
     Dates: start: 20070224, end: 20070224
  2. WARFARIN POTASSIUM [Concomitant]
     Dates: end: 20070224
  3. ENALAPRIL MALEATE [Concomitant]
     Dates: end: 20070224
  4. AMLODIPINE BESYLATE [Concomitant]
     Dates: end: 20070224
  5. LANSOPRAZOLE [Concomitant]
     Dates: end: 20070224

REACTIONS (1)
  - CYSTITIS [None]
